FAERS Safety Report 6158027-8 (Version None)
Quarter: 2009Q2

REPORT INFORMATION
  Report Type: 
  Country: None (occurrence: None)
  Receive Date: 20090417
  Receipt Date: 20090408
  Transmission Date: 20091009
  Serious: Yes (Other)
  Sender: FDA-Public Use
  Company Number: US-PFIZER INC-2004230291US

PATIENT
  Sex: Female
  Weight: 54 kg

DRUGS (11)
  1. PROVERA [Suspect]
     Indication: MENOPAUSAL SYMPTOMS
     Dosage: 2.5 MG, UNK
     Route: 065
     Dates: start: 19820101, end: 20010701
  2. PREMARIN [Suspect]
     Indication: HORMONE REPLACEMENT THERAPY
     Dosage: 0.625 MG, UNK
     Route: 065
     Dates: start: 19820101, end: 20010701
  3. HYDROCHLOROTHIAZIDE [Concomitant]
     Indication: POLYURIA
     Route: 065
     Dates: start: 20031028, end: 20040101
  4. LISINOPRIL [Concomitant]
     Indication: HYPERTENSION
     Dosage: 20 MG, UNK
     Route: 065
     Dates: start: 19550101
  5. ATORVASTATIN CALCIUM [Concomitant]
     Indication: BLOOD CHOLESTEROL ABNORMAL
     Route: 065
     Dates: start: 20010101
  6. TOLTERODINE TARTRATE [Concomitant]
     Indication: HYPERTONIC BLADDER
     Route: 065
     Dates: start: 20010101
  7. ACETYLSALICYLIC ACID [Concomitant]
     Indication: ANTICOAGULANT THERAPY
     Route: 065
     Dates: start: 19990101
  8. HYDROCODONE BITARTRATE [Concomitant]
     Indication: PAIN
     Dosage: UNK
     Route: 065
     Dates: start: 20000101
  9. ALENDRONATE SODIUM [Concomitant]
     Indication: OSTEOPOROSIS
     Route: 065
     Dates: start: 19990101
  10. VERAPAMIL [Concomitant]
     Indication: HYPERTENSION
     Route: 065
     Dates: start: 19930101
  11. FOSAMAX [Concomitant]
     Indication: OSTEOPOROSIS
     Dosage: UNK
     Dates: start: 19990101, end: 20060101

REACTIONS (1)
  - BREAST CANCER FEMALE [None]
